FAERS Safety Report 18474297 (Version 6)
Quarter: 2021Q2

REPORT INFORMATION
  Report Type: Report from Study
  Country: DE (occurrence: DE)
  Receive Date: 20201106
  Receipt Date: 20210423
  Transmission Date: 20210717
  Serious: Yes (Hospitalization, Other)
  Sender: FDA-Public Use
  Company Number: NVSC2020DE295467

PATIENT
  Age: 47 Year
  Sex: Female
  Weight: 75 kg

DRUGS (11)
  1. METAMIZOLE [Concomitant]
     Active Substance: METAMIZOLE
     Indication: MIGRAINE
     Dosage: UNK
     Route: 065
     Dates: start: 20140101
  2. MIRTAZAPIN [Concomitant]
     Active Substance: MIRTAZAPINE
     Indication: INSOMNIA
     Dosage: UNK
     Route: 065
     Dates: start: 20191008
  3. VILANTEROL [Concomitant]
     Active Substance: VILANTEROL TRIFENATATE
     Indication: ASTHMA
     Dosage: UNK
     Route: 065
     Dates: start: 20140101
  4. SALBUTAMOL [Concomitant]
     Active Substance: ALBUTEROL
     Indication: ASTHMA
     Dosage: UNK
     Route: 065
     Dates: start: 20050101
  5. TORASEMID [Concomitant]
     Active Substance: TORSEMIDE
     Indication: HYPERTENSION
     Dosage: UNK
     Route: 065
     Dates: start: 20050101
  6. FLUTICASON [Concomitant]
     Active Substance: FLUTICASONE
     Indication: ASTHMA
     Dosage: UNK
     Route: 065
     Dates: start: 20140101
  7. IBUPROFEN. [Concomitant]
     Active Substance: IBUPROFEN
     Indication: MIGRAINE
     Dosage: UNK
     Route: 065
     Dates: start: 20050101
  8. OFATUMUMAB [Suspect]
     Active Substance: OFATUMUMAB
     Indication: MULTIPLE SCLEROSIS RELAPSE
     Dosage: 20 MG, Q4W
     Route: 058
     Dates: start: 20190911, end: 20200814
  9. OFATUMUMAB [Suspect]
     Active Substance: OFATUMUMAB
     Indication: MULTIPLE SCLEROSIS
     Dosage: 1 DF, QW
     Route: 058
     Dates: start: 20190916
  10. SPIRONOLACTON [Concomitant]
     Active Substance: SPIRONOLACTONE
     Indication: HYPERTENSION
     Dosage: UNK
     Route: 065
     Dates: start: 20170601
  11. MARCUMAR [Concomitant]
     Active Substance: PHENPROCOUMON
     Indication: PROPHYLAXIS
     Dosage: UNK
     Route: 065
     Dates: start: 20050101

REACTIONS (1)
  - Breast cancer [Not Recovered/Not Resolved]

NARRATIVE: CASE EVENT DATE: 20200917
